FAERS Safety Report 13903900 (Version 1)
Quarter: 2017Q3

REPORT INFORMATION
  Report Type: Spontaneous
  Country: US (occurrence: US)
  Receive Date: 20170824
  Receipt Date: 20170824
  Transmission Date: 20171127
  Serious: No
  Sender: FDA-Public Use
  Company Number: US-GILEAD-2017-0289557

PATIENT
  Age: 48 Year
  Sex: Male

DRUGS (6)
  1. PEG INF [Concomitant]
     Active Substance: PEGINTERFERON ALFA-2A
     Indication: CHRONIC HEPATITIS C
     Dosage: 180 UG, Q1WK
     Route: 058
     Dates: start: 20140425
  2. LISINOPRIL. [Concomitant]
     Active Substance: LISINOPRIL
  3. PROPRANOLOL HYDROCHLORIDE. [Concomitant]
     Active Substance: PROPRANOLOL HYDROCHLORIDE
  4. RIBAVIRIN. [Concomitant]
     Active Substance: RIBAVIRIN
     Indication: CHRONIC HEPATITIS C
     Dosage: 1200 MG, QD, IN DIVIDED DOSES
     Route: 048
     Dates: start: 20140425
  5. NAPROXEN SODIUM. [Concomitant]
     Active Substance: NAPROXEN SODIUM
  6. SOVALDI [Suspect]
     Active Substance: SOFOSBUVIR
     Indication: CHRONIC HEPATITIS C
     Dosage: UNK
     Route: 065
     Dates: start: 20140425

REACTIONS (5)
  - Bursitis [Unknown]
  - Dyspepsia [Unknown]
  - Chest pain [Unknown]
  - Pain [Unknown]
  - Heart rate increased [Unknown]
